FAERS Safety Report 23361458 (Version 1)
Quarter: 2024Q1

REPORT INFORMATION
  Report Type: Spontaneous
  Country: US (occurrence: None)
  Receive Date: 20240102
  Receipt Date: 20240102
  Transmission Date: 20240410
  Serious: Yes (Other)
  Sender: FDA-Public Use
  Company Number: None

PATIENT
  Age: 73 Year
  Sex: Male
  Weight: 85.5 kg

DRUGS (2)
  1. ELIQUIS [Suspect]
     Active Substance: APIXABAN
     Indication: Cardiac disorder
  2. ELIQUIS [Concomitant]
     Active Substance: APIXABAN
     Dates: start: 20231028, end: 20231228

REACTIONS (5)
  - Gingival bleeding [None]
  - Post procedural haemorrhage [None]
  - Dizziness [None]
  - Pallor [None]
  - Haemoglobin decreased [None]

NARRATIVE: CASE EVENT DATE: 20231226
